FAERS Safety Report 5696084-3 (Version None)
Quarter: 2008Q2

REPORT INFORMATION
  Report Type: 
  Country: None (occurrence: None)
  Receive Date: 20080407
  Receipt Date: 20080326
  Transmission Date: 20081010
  Serious: Yes (Hospitalization)
  Sender: FDA-Public Use
  Company Number: B0514679A

PATIENT
  Age: 67 Year
  Sex: Male

DRUGS (1)
  1. HYCAMTIN [Suspect]
     Route: 042

REACTIONS (1)
  - ACUTE PULMONARY OEDEMA [None]
